FAERS Safety Report 24653169 (Version 11)
Quarter: 2025Q3

REPORT INFORMATION
  Report Type: Spontaneous
  Country: US (occurrence: US)
  Receive Date: 20241122
  Receipt Date: 20250916
  Transmission Date: 20251020
  Serious: Yes (Other)
  Sender: PFIZER
  Company Number: US-PFIZER INC-202400304605

PATIENT
  Age: 67 Year
  Sex: Female

DRUGS (6)
  1. TUKYSA [Suspect]
     Active Substance: TUCATINIB
     Indication: Breast cancer female
     Dosage: 150 MG TAKE TWO TABLETS BY MOUTH TWO TIMES DAILY. TAKE WITH OR WITHOUT FOOD
     Route: 048
  2. TUKYSA [Suspect]
     Active Substance: TUCATINIB
     Dosage: 2 TABLETS PO (ORALLY) BID (TWICE A DAY) WITHOUT FOOD (BY MOUTH)
     Route: 048
  3. TUKYSA [Suspect]
     Active Substance: TUCATINIB
     Dosage: 150MG, TAKING 1 TABLET IN THE MORNING, AND 2 TABLETS IN THE EVENING
  4. HERCEPTIN HYLECTA [Concomitant]
     Active Substance: HYALURONIDASE-OYSK\TRASTUZUMAB
  5. CAPECITABINE [Concomitant]
     Active Substance: CAPECITABINE
  6. LETROZOLE [Concomitant]
     Active Substance: LETROZOLE

REACTIONS (6)
  - Metastases to central nervous system [Unknown]
  - Breast cancer female [Unknown]
  - Malignant neoplasm progression [Unknown]
  - Off label use [Unknown]
  - Off label use [Unknown]
  - Product use issue [Unknown]

NARRATIVE: CASE EVENT DATE: 20210601
